FAERS Safety Report 10226380 (Version 2)
Quarter: 2014Q2

REPORT INFORMATION
  Report Type: Report from Study
  Country: US (occurrence: US)
  Receive Date: 20140609
  Receipt Date: 20140612
  Transmission Date: 20141212
  Serious: Yes (Other)
  Sender: FDA-Public Use
  Company Number: US-ABBVIE-14P-163-1243781-00

PATIENT
  Age: 59 Year
  Sex: Female
  Weight: 97.16 kg

DRUGS (21)
  1. HUMIRA [Suspect]
     Indication: RHEUMATOID ARTHRITIS
     Route: 058
     Dates: start: 20140324
  2. ALEVE [Concomitant]
     Indication: PRODUCT USED FOR UNKNOWN INDICATION
  3. CITALOPRAM [Concomitant]
     Indication: PRODUCT USED FOR UNKNOWN INDICATION
  4. COCONUT OIL [Concomitant]
     Indication: PRODUCT USED FOR UNKNOWN INDICATION
  5. FLUOCINONIDE [Concomitant]
     Indication: PRODUCT USED FOR UNKNOWN INDICATION
  6. FOLIC ACID [Concomitant]
     Indication: PRODUCT USED FOR UNKNOWN INDICATION
  7. HUMALOG [Concomitant]
     Indication: DIABETES MELLITUS
  8. METHOTREXATE [Concomitant]
     Indication: RHEUMATOID ARTHRITIS
  9. MINOCYCLINE [Concomitant]
     Indication: PRODUCT USED FOR UNKNOWN INDICATION
  10. MULTIVITAMIN [Concomitant]
     Indication: PRODUCT USED FOR UNKNOWN INDICATION
  11. NIACIN [Concomitant]
     Indication: PRODUCT USED FOR UNKNOWN INDICATION
  12. OMEGA 3 FISH OIL [Concomitant]
     Indication: PRODUCT USED FOR UNKNOWN INDICATION
  13. VITAMIN D [Concomitant]
     Indication: PRODUCT USED FOR UNKNOWN INDICATION
  14. PRAVASTATIN [Concomitant]
     Indication: BLOOD CHOLESTEROL
  15. PREDNISONE [Concomitant]
     Indication: PRODUCT USED FOR UNKNOWN INDICATION
  16. PREVACID [Concomitant]
     Indication: GASTROOESOPHAGEAL REFLUX DISEASE
  17. ZYLOPRIM [Concomitant]
     Indication: DEPRESSION
  18. CALCIUM [Concomitant]
     Indication: MINERAL SUPPLEMENTATION
  19. MAGNESIUM [Concomitant]
     Indication: MINERAL SUPPLEMENTATION
  20. ZINC [Concomitant]
     Indication: VITAMIN SUPPLEMENTATION
  21. HYBROBROMIDE [Concomitant]
     Indication: PRODUCT USED FOR UNKNOWN INDICATION

REACTIONS (4)
  - Skin mass [Recovering/Resolving]
  - Localised infection [Recovering/Resolving]
  - Granuloma [Unknown]
  - Inflammation [Unknown]
